FAERS Safety Report 17914431 (Version 1)
Quarter: 2020Q2

REPORT INFORMATION
  Report Type: Report from Study
  Country: CA (occurrence: CA)
  Receive Date: 20200618
  Receipt Date: 20200618
  Transmission Date: 20200714
  Serious: Yes (Other)
  Sender: FDA-Public Use
  Company Number: CA-HLS-202000279

PATIENT
  Age: 34 Year
  Sex: Male
  Weight: 96 kg

DRUGS (2)
  1. NADOLOL. [Concomitant]
     Active Substance: NADOLOL
     Indication: TACHYCARDIA
     Dosage: 10MG DAILY
     Route: 048
     Dates: start: 20200409
  2. CLOZARIL [Suspect]
     Active Substance: CLOZAPINE
     Indication: SCHIZOPHRENIA
     Dosage: 225MG AT NIGHT
     Route: 048
     Dates: start: 20200213

REACTIONS (2)
  - Tachycardia [Unknown]
  - Upper respiratory tract infection [Recovered/Resolved]

NARRATIVE: CASE EVENT DATE: 202004
